FAERS Safety Report 5692082-4 (Version None)
Quarter: 2008Q2

REPORT INFORMATION
  Report Type: 
  Country: None (occurrence: None)
  Receive Date: 20080402
  Receipt Date: 20080325
  Transmission Date: 20081010
  Serious: Yes (Other)
  Sender: FDA-Public Use
  Company Number: US-PFIZER INC-2007037214

PATIENT
  Sex: Female
  Weight: 95.454 kg

DRUGS (4)
  1. CHANTIX [Suspect]
     Indication: SMOKING CESSATION THERAPY
  2. ANTIBIOTICS [Suspect]
     Indication: NASOPHARYNGITIS
  3. METHOTREXATE [Concomitant]
  4. ALL OTHER THERAPEUTIC PRODUCTS [Concomitant]

REACTIONS (7)
  - ARTERIAL OCCLUSIVE DISEASE [None]
  - CARDIOSPASM [None]
  - CHEST DISCOMFORT [None]
  - DIZZINESS [None]
  - DYSPEPSIA [None]
  - LABILE BLOOD PRESSURE [None]
  - NASOPHARYNGITIS [None]
